FAERS Safety Report 7519643-1 (Version None)
Quarter: 2011Q2

REPORT INFORMATION
  Report Type: 
  Country: None (occurrence: None)
  Receive Date: 20110602
  Receipt Date: 20110525
  Transmission Date: 20111010
  Serious: Yes (Other)
  Sender: FDA-Public Use
  Company Number: B0554370A

PATIENT
  Sex: Female
  Weight: 45.1 kg

DRUGS (2)
  1. TRASTUZUMAB [Suspect]
     Indication: BREAST CANCER
     Route: 042
     Dates: start: 20080119
  2. LAPATINIB [Suspect]
     Indication: BREAST CANCER
     Dosage: 1000MGD PER DAY
     Route: 048
     Dates: start: 20080119, end: 20081201

REACTIONS (3)
  - HEPATIC ENZYME INCREASED [None]
  - BLOOD BILIRUBIN INCREASED [None]
  - JAUNDICE [None]
